FAERS Safety Report 12743218 (Version 2)
Quarter: 2016Q3

REPORT INFORMATION
  Report Type: Spontaneous
  Country: US (occurrence: US)
  Receive Date: 20160914
  Receipt Date: 20160928
  Transmission Date: 20161109
  Serious: No
  Sender: FDA-Public Use
  Company Number: US-BAYER-2016-178862

PATIENT
  Age: 84 Year
  Sex: Female
  Weight: 62.59 kg

DRUGS (5)
  1. AMLODIPINE [Concomitant]
     Active Substance: AMLODIPINE BESYLATE
  2. ALEVE [Suspect]
     Active Substance: NAPROXEN SODIUM
     Indication: PAIN
     Dosage: 1 DF, BID (MORNING + NIGHT)
     Route: 048
     Dates: start: 20160911, end: 20160911
  3. ATENOLOL. [Concomitant]
     Active Substance: ATENOLOL
  4. ATORVASTATIN CALCIUM. [Concomitant]
     Active Substance: ATORVASTATIN CALCIUM
  5. ALEVE [Suspect]
     Active Substance: NAPROXEN SODIUM
     Indication: PAIN
     Dosage: 1 DF, ONCE
     Dates: start: 20160912, end: 20160912

REACTIONS (1)
  - Expired product administered [Unknown]
